FAERS Safety Report 25484697 (Version 1)
Quarter: 2025Q2

REPORT INFORMATION
  Report Type: Spontaneous
  Country: US (occurrence: None)
  Receive Date: 20250627
  Receipt Date: 20250627
  Transmission Date: 20250717
  Serious: Yes (unspecified)
  Sender: FDA-CTU
  Company Number: None

PATIENT
  Age: 52 Year
  Sex: Female
  Weight: 114.75 kg

DRUGS (5)
  1. OZEMPIC [Suspect]
     Active Substance: SEMAGLUTIDE
     Indication: Obesity
     Route: 030
     Dates: start: 20250510
  2. XANAX [Concomitant]
     Active Substance: ALPRAZOLAM
  3. SEROQUEL [Concomitant]
     Active Substance: QUETIAPINE FUMARATE
  4. PEPCID [Concomitant]
     Active Substance: FAMOTIDINE
  5. BROMOCRIPTINE [Concomitant]
     Active Substance: BROMOCRIPTINE

REACTIONS (4)
  - Dissociation [None]
  - Suicidal ideation [None]
  - Fatigue [None]
  - Bedridden [None]

NARRATIVE: CASE EVENT DATE: 20250621
